FAERS Safety Report 8319566-4 (Version None)
Quarter: 2012Q2

REPORT INFORMATION
  Report Type: 
  Country: None (occurrence: None)
  Receive Date: 20120427
  Receipt Date: 20120423
  Transmission Date: 20120825
  Serious: Yes (Death)
  Sender: FDA-Public Use
  Company Number: PHHY2012US035325

PATIENT
  Age: 64 Year
  Sex: Male

DRUGS (5)
  1. NITROGLYCERIN [Suspect]
  2. VENLAFAXINE [Concomitant]
  3. SALICYLATE [Concomitant]
  4. METOPROLOL TARTRATE [Suspect]
  5. RANITIDINE [Suspect]

REACTIONS (1)
  - COMPLETED SUICIDE [None]
